FAERS Safety Report 8991053 (Version 1)
Quarter: 2012Q4

REPORT INFORMATION
  Report Type: Spontaneous
  Country: US (occurrence: None)
  Receive Date: 20121227
  Receipt Date: 20121227
  Transmission Date: 20130627
  Serious: Yes (Death)
  Sender: FDA-Public Use
  Company Number: None

PATIENT
  Age: 78 Year
  Sex: Female

DRUGS (11)
  1. LETAIRIS [Suspect]
     Indication: PULMONARY HYPERTENSION
     Dosage: Letairis 5 mg daily orally
     Route: 048
  2. BUMETANIDE [Concomitant]
  3. NORTRIPTYLINE [Concomitant]
  4. TRAZODONE [Concomitant]
  5. LORAZEPAM [Concomitant]
  6. ADCIRCA [Concomitant]
  7. LISINOPRIL [Concomitant]
  8. CALCIUM/VITAMIN D [Concomitant]
  9. OMEPRAZOLE [Concomitant]
  10. SIMVASTATIN [Concomitant]
  11. DIGOXIN [Concomitant]

REACTIONS (6)
  - Weight increased [None]
  - No therapeutic response [None]
  - Anuria [None]
  - Fluid overload [None]
  - Dyspnoea exertional [None]
  - Fatigue [None]
